FAERS Safety Report 7445530-3 (Version None)
Quarter: 2011Q2

REPORT INFORMATION
  Report Type: 
  Country: None (occurrence: None)
  Receive Date: 20110429
  Receipt Date: 20110425
  Transmission Date: 20111010
  Serious: Yes (Death, Hospitalization)
  Sender: FDA-Public Use
  Company Number: JP-SANOFI-AVENTIS-2011SA016237

PATIENT
  Age: 90 Year
  Sex: Female
  Weight: 41.6 kg

DRUGS (10)
  1. PLETAL [Suspect]
     Indication: STENT PLACEMENT
     Route: 048
     Dates: start: 20101231, end: 20110121
  2. PLAVIX [Suspect]
     Indication: STENT PLACEMENT
     Route: 048
     Dates: start: 20101220, end: 20101230
  3. ASPIRIN [Suspect]
     Indication: STENT PLACEMENT
     Route: 048
     Dates: start: 20101222, end: 20110311
  4. ALFAROL [Suspect]
     Dates: end: 20110302
  5. LENDORMIN [Concomitant]
  6. PLAVIX [Suspect]
     Route: 048
     Dates: start: 20110122, end: 20110301
  7. OMEPRAL [Concomitant]
  8. CRESTOR [Concomitant]
  9. CELECTOL [Concomitant]
  10. FRANDOL [Concomitant]

REACTIONS (3)
  - POST PROCEDURAL HAEMORRHAGE [None]
  - INTERSTITIAL LUNG DISEASE [None]
  - ANAEMIA [None]
